FAERS Safety Report 4842641-3 (Version None)
Quarter: 2005Q4

REPORT INFORMATION
  Report Type: 
  Country: None (occurrence: None)
  Receive Date: 20051129
  Receipt Date: 20051114
  Transmission Date: 20060501
  Serious: Yes (Hospitalization, Other)
  Sender: FDA-Public Use
  Company Number: US200511000812

PATIENT
  Age: 65 Year
  Sex: Male

DRUGS (2)
  1. HUMATROPE [Suspect]
     Indication: HYPOPITUITARISM
     Dosage: 0.3 MG, DAILY (1/D), UNK
     Dates: start: 19990101
  2. HUMATROPEN(HUMATROPEN) PEN, RESUSABLE [Concomitant]

REACTIONS (3)
  - ARTHRITIS INFECTIVE [None]
  - CHONDROPATHY [None]
  - DEVICE FAILURE [None]
